FAERS Safety Report 17385660 (Version 2)
Quarter: 2020Q2

REPORT INFORMATION
  Report Type: Spontaneous
  Country: US (occurrence: US)
  Receive Date: 20200206
  Receipt Date: 20200506
  Transmission Date: 20200713
  Serious: Yes (Other)
  Sender: FDA-Public Use
  Company Number: US-PFIZER INC-2020045677

PATIENT
  Age: 87 Year
  Sex: Female

DRUGS (1)
  1. XELJANZ XR [Suspect]
     Active Substance: TOFACITINIB CITRATE
     Indication: RHEUMATOID ARTHRITIS
     Dosage: 11 MG, 1X/DAY
     Route: 048
     Dates: start: 20190129

REACTIONS (5)
  - Pulmonary mycosis [Recovered/Resolved]
  - Dyspepsia [Recovering/Resolving]
  - Hypersensitivity [Unknown]
  - Upper-airway cough syndrome [Unknown]
  - Cough [Unknown]
